FAERS Safety Report 6856263-6 (Version None)
Quarter: 2010Q2

REPORT INFORMATION
  Report Type: 
  Country: None (occurrence: None)
  Receive Date: 20100630
  Receipt Date: 20100413
  Transmission Date: 20101027
  Serious: No
  Sender: FDA-Public Use
  Company Number: 1000012766

PATIENT
  Age: 60 Year
  Sex: Female

DRUGS (5)
  1. BYSTOLIC [Suspect]
     Indication: TACHYCARDIA
     Dosage: 2.5 MG (2.5 MG, 1 IN D,ORAL; (2.5 , QOD),ORAL
     Route: 048
     Dates: start: 20100301, end: 20100301
  2. BYSTOLIC [Suspect]
     Indication: TACHYCARDIA
     Dosage: 2.5 MG (2.5 MG, 1 IN D,ORAL; (2.5 , QOD),ORAL
     Route: 048
     Dates: start: 20100301
  3. SYNTHROID [Concomitant]
  4. MULTAQ [Concomitant]
  5. HYZAAR [Concomitant]

REACTIONS (3)
  - DYSPNOEA [None]
  - MIOSIS [None]
  - MYDRIASIS [None]
